FAERS Safety Report 4745671-5 (Version None)
Quarter: 2005Q3

REPORT INFORMATION
  Report Type: 
  Country: None (occurrence: None)
  Receive Date: 20050811
  Receipt Date: 20050802
  Transmission Date: 20060218
  Serious: Yes (Other)
  Sender: FDA-Public Use
  Company Number: 2005087162

PATIENT
  Age: 32 Year
  Sex: Female

DRUGS (1)
  1. DOSTINEX [Suspect]
     Indication: ANOVULATORY CYCLE
     Dosage: 0.25 MG (0.25 MG, QD INTERVAL:ONCE A WEEK), ORAL
     Route: 048
     Dates: start: 20050517, end: 20050601

REACTIONS (4)
  - CHEST PAIN [None]
  - DIZZINESS [None]
  - HEADACHE [None]
  - INTERSTITIAL LUNG DISEASE [None]
